FAERS Safety Report 12274933 (Version 1)
Quarter: 2016Q2

REPORT INFORMATION
  Report Type: Spontaneous
  Country: US (occurrence: US)
  Receive Date: 20160415
  Receipt Date: 20160415
  Transmission Date: 20160815
  Serious: No
  Sender: FDA-Public Use
  Company Number: US-ALLERGAN-1637762US

PATIENT
  Age: 62 Year
  Sex: Female
  Weight: 81.63 kg

DRUGS (2)
  1. LATISSE [Suspect]
     Active Substance: BIMATOPROST
     Indication: GROWTH OF EYELASHES
     Dosage: UNK, QHS
     Route: 061
     Dates: start: 201602, end: 201602
  2. BIOTIN [Concomitant]
     Active Substance: BIOTIN
     Indication: PRODUCT USED FOR UNKNOWN INDICATION
     Dosage: UNK

REACTIONS (6)
  - Erythema [Recovered/Resolved]
  - Inappropriate schedule of drug administration [Unknown]
  - Eye irritation [Recovered/Resolved]
  - Drug hypersensitivity [Not Recovered/Not Resolved]
  - Dark circles under eyes [Recovered/Resolved]
  - Ocular hyperaemia [Recovered/Resolved]

NARRATIVE: CASE EVENT DATE: 201602
